FAERS Safety Report 21560983 (Version 1)
Quarter: 2022Q4

REPORT INFORMATION
  Report Type: Spontaneous
  Country: AU (occurrence: AU)
  Receive Date: 20221107
  Receipt Date: 20221107
  Transmission Date: 20230113
  Serious: Yes (Hospitalization, Other)
  Sender: FDA-Public Use
  Company Number: AU-TASMAN PHARMA, INC.-2022TSM00127

PATIENT
  Sex: Male

DRUGS (7)
  1. VERSACLOZ [Suspect]
     Active Substance: CLOZAPINE
     Dosage: 25 MG
     Dates: start: 20220824, end: 20220830
  2. VERSACLOZ [Suspect]
     Active Substance: CLOZAPINE
     Dosage: 75 MG
     Dates: start: 20220831, end: 20220906
  3. VERSACLOZ [Suspect]
     Active Substance: CLOZAPINE
     Dosage: 150 MG
     Dates: start: 20220907, end: 20220913
  4. VERSACLOZ [Suspect]
     Active Substance: CLOZAPINE
     Dosage: 200 MG
     Dates: start: 20220914, end: 20220920
  5. CLOZAPINE [Suspect]
     Active Substance: CLOZAPINE
     Dosage: 250 MG
     Dates: start: 20220921, end: 20221004
  6. CLOZAPINE [Suspect]
     Active Substance: CLOZAPINE
     Dosage: 275 MG
     Dates: start: 20221005
  7. LITHIUM CARBONATE [Concomitant]
     Active Substance: LITHIUM CARBONATE
     Indication: Neutropenia
     Dosage: 450 MG, 1X/DAY
     Dates: start: 20210322

REACTIONS (3)
  - Hospitalisation [Unknown]
  - Neutropenia [Not Recovered/Not Resolved]
  - Neutrophil count decreased [Not Recovered/Not Resolved]

NARRATIVE: CASE EVENT DATE: 20220928
